FAERS Safety Report 24823342 (Version 2)
Quarter: 2025Q1

REPORT INFORMATION
  Report Type: Report from Study
  Country: CA (occurrence: CA)
  Receive Date: 20250109
  Receipt Date: 20250306
  Transmission Date: 20250409
  Serious: Yes (Other)
  Sender: TAKEDA
  Company Number: CA-TAKEDA-2023TUS100596

PATIENT
  Age: 47 Year
  Sex: Female

DRUGS (8)
  1. VEDOLIZUMAB [Suspect]
     Active Substance: VEDOLIZUMAB
     Indication: Crohn^s disease
  2. VEDOLIZUMAB [Suspect]
     Active Substance: VEDOLIZUMAB
  3. VEDOLIZUMAB [Suspect]
     Active Substance: VEDOLIZUMAB
  4. VEDOLIZUMAB [Suspect]
     Active Substance: VEDOLIZUMAB
  5. VEDOLIZUMAB [Suspect]
     Active Substance: VEDOLIZUMAB
  6. VEDOLIZUMAB [Suspect]
     Active Substance: VEDOLIZUMAB
  7. VEDOLIZUMAB [Suspect]
     Active Substance: VEDOLIZUMAB
  8. VEDOLIZUMAB [Suspect]
     Active Substance: VEDOLIZUMAB

REACTIONS (13)
  - Uveitis [Unknown]
  - Blood iron decreased [Unknown]
  - Haemoglobin decreased [Unknown]
  - COVID-19 [Recovered/Resolved]
  - Dizziness [Unknown]
  - Headache [Not Recovered/Not Resolved]
  - Fatigue [Recovering/Resolving]
  - Faeces soft [Unknown]
  - Diarrhoea [Unknown]
  - Malaise [Unknown]
  - Arthralgia [Not Recovered/Not Resolved]
  - Rash [Recovered/Resolved]
  - Nausea [Recovering/Resolving]

NARRATIVE: CASE EVENT DATE: 20230906
